FAERS Safety Report 10034005 (Version 1)
Quarter: 2014Q1

REPORT INFORMATION
  Report Type: Spontaneous
  Country: US (occurrence: None)
  Receive Date: 20140324
  Receipt Date: 20140324
  Transmission Date: 20141002
  Serious: Yes (Hospitalization)
  Sender: FDA-Public Use
  Company Number: None

PATIENT
  Age: 53 Year
  Sex: Female
  Weight: 95.71 kg

DRUGS (1)
  1. VANCOMYCIN [Suspect]
     Indication: OSTEOMYELITIS
     Dosage: 2X PER DAY TWICE DAILY INTO A VEIN
     Route: 042
     Dates: start: 20140322, end: 20140322

REACTIONS (6)
  - Nausea [None]
  - Vomiting [None]
  - Dyspnoea [None]
  - Chest pain [None]
  - Anaemia [None]
  - Dehydration [None]
